FAERS Safety Report 9595250 (Version 2)
Quarter: 2013Q4

REPORT INFORMATION
  Report Type: Spontaneous
  Country: US (occurrence: US)
  Receive Date: 20131004
  Receipt Date: 20131004
  Transmission Date: 20140711
  Serious: No
  Sender: FDA-Public Use
  Company Number: US-PURDUE-USA-2012-0091439

PATIENT
  Age: 61 Year
  Sex: Male
  Weight: 87.53 kg

DRUGS (3)
  1. BUTRANS [Suspect]
     Indication: PAIN
     Dosage: 20 MCG, WEEKLY
     Route: 062
     Dates: start: 20110927, end: 20120208
  2. BUTRANS [Suspect]
     Dosage: 10 MCG, WEEKLY
     Route: 062
  3. OXYCODONE HYDROCHLORIDE (SIMILAR TO NDA 22-272) [Concomitant]
     Indication: PAIN
     Dosage: 10/325 MG
     Route: 048

REACTIONS (2)
  - Application site discolouration [Recovered/Resolved]
  - Application site vesicles [Recovered/Resolved]
